FAERS Safety Report 7469956-7 (Version None)
Quarter: 2011Q2

REPORT INFORMATION
  Report Type: 
  Country: None (occurrence: None)
  Receive Date: 20110510
  Receipt Date: 20110329
  Transmission Date: 20111010
  Serious: Yes (Other)
  Sender: FDA-Public Use
  Company Number: US-BAYER-201034329NA

PATIENT
  Age: 24 Year
  Sex: Female
  Weight: 61.678 kg

DRUGS (13)
  1. YASMIN [Suspect]
     Dosage: UNK
     Dates: start: 20101021
  2. ALPRAZOLAM [Concomitant]
  3. YASMIN [Suspect]
     Indication: CONTRACEPTION
     Dosage: UNK
     Route: 048
     Dates: start: 20071017, end: 20081001
  4. XANAX [Concomitant]
  5. NSAID'S [Concomitant]
  6. ACETAMINOPHEN [Concomitant]
  7. PRILOSEC [Concomitant]
  8. STOOL SOFTENER [Concomitant]
  9. DOXYCYCLINE [Concomitant]
     Dosage: UNK UNK, QD
     Dates: start: 20080801
  10. IBUPROFENO [Concomitant]
  11. YASMIN [Suspect]
     Indication: PREMENSTRUAL SYNDROME
     Dosage: UNK
     Dates: start: 20090601, end: 20090901
  12. MAXUI MELT [Concomitant]
     Dosage: UNK
     Dates: start: 20070101
  13. ONE A DAY [B12,D2,B3,B6,RETINOL,B2,NA+ ASCORB,B1 MONONITR] [Concomitant]

REACTIONS (5)
  - CHOLECYSTITIS [None]
  - CHOLELITHIASIS [None]
  - ABDOMINAL PAIN [None]
  - NAUSEA [None]
  - ABDOMINAL PAIN UPPER [None]
